FAERS Safety Report 9270350 (Version 1)
Quarter: 2013Q2

REPORT INFORMATION
  Report Type: Report from Study
  Country: BR (occurrence: BR)
  Receive Date: 20130503
  Receipt Date: 20130503
  Transmission Date: 20140414
  Serious: Yes (Hospitalization)
  Sender: FDA-Public Use
  Company Number: BR-ABBOTT-10P-020-0675843-00

PATIENT
  Sex: Female
  Weight: 68 kg

DRUGS (22)
  1. HUMIRA 40 MG/ 0.8 ML PRE-FILLED SYRINGE [Suspect]
     Indication: RHEUMATOID ARTHRITIS
     Route: 058
  2. MORPHINE [Suspect]
     Indication: SPINAL PAIN
     Route: 048
  3. AMITRIPTYLINE [Concomitant]
     Indication: FIBROMYALGIA
     Route: 048
  4. AMITRIPTYLINE [Concomitant]
     Indication: MYALGIA
  5. DIAZEPAM [Concomitant]
     Indication: AGITATION
     Route: 048
  6. DIAZEPAM [Concomitant]
     Indication: INSOMNIA
  7. DIAZEPAM [Concomitant]
     Indication: RELAXATION THERAPY
  8. DIAZEPAM [Concomitant]
     Indication: ANXIETY
  9. OSCAL D [Concomitant]
     Indication: BONE DISORDER
     Route: 048
  10. PREDNISONE [Concomitant]
     Indication: RHEUMATOID ARTHRITIS
     Route: 048
  11. PREDNISONE [Concomitant]
     Indication: PAIN
  12. PROPRANOLOL [Concomitant]
     Indication: HYPERTENSION
     Route: 048
  13. PROPRANOLOL [Concomitant]
     Indication: HEART RATE INCREASED
  14. NATRILIX [Concomitant]
     Indication: HYPERTENSION
     Route: 048
  15. SULFASALAZINE [Concomitant]
     Indication: RHEUMATOID ARTHRITIS
     Route: 048
  16. SULFASALAZINE [Concomitant]
     Indication: RHEUMATIC DISORDER
  17. SULFASALAZINE [Concomitant]
     Indication: INFLAMMATION
  18. CALCIUM ALENDRONATE [Concomitant]
     Indication: MINERAL SUPPLEMENTATION
     Route: 048
  19. VITAMIN B3 [Concomitant]
     Indication: VITAMIN SUPPLEMENTATION
  20. INDAPAMINE [Concomitant]
     Indication: HYPERTENSION
     Route: 048
  21. FLUOXETINE [Concomitant]
     Indication: ANXIETY
     Route: 048
  22. SODIUM ALENDRONATE [Concomitant]
     Indication: BONE DISORDER
     Route: 048

REACTIONS (25)
  - Intervertebral disc compression [Not Recovered/Not Resolved]
  - Bone disorder [Not Recovered/Not Resolved]
  - Weight increased [Not Recovered/Not Resolved]
  - Influenza [Recovered/Resolved]
  - Increased upper airway secretion [Recovered/Resolved]
  - Weight loss poor [Not Recovered/Not Resolved]
  - Blood cholesterol increased [Not Recovered/Not Resolved]
  - Injection site haematoma [Not Recovered/Not Resolved]
  - Injection site discolouration [Not Recovered/Not Resolved]
  - Weight loss poor [Not Recovered/Not Resolved]
  - Hunger [Not Recovered/Not Resolved]
  - Spinal pain [Unknown]
  - Spinal osteoarthritis [Unknown]
  - Nausea [Recovered/Resolved]
  - Asthenia [Recovered/Resolved]
  - Decreased appetite [Recovered/Resolved]
  - Vomiting [Recovered/Resolved]
  - Asthenia [Recovered/Resolved]
  - Inflammation [Unknown]
  - Cough [Recovered/Resolved]
  - Weight decreased [Unknown]
  - Spinal pain [Not Recovered/Not Resolved]
  - Anxiety [Not Recovered/Not Resolved]
  - Depression [Not Recovered/Not Resolved]
  - Stress [Unknown]
